FAERS Safety Report 17593443 (Version 1)
Quarter: 2020Q1

REPORT INFORMATION
  Report Type: Spontaneous
  Country: DE (occurrence: DE)
  Receive Date: 20200327
  Receipt Date: 20200327
  Transmission Date: 20200409
  Serious: Yes (Other)
  Sender: FDA-Public Use
  Company Number: DE-MYLANLABS-2020M1032132

PATIENT
  Age: 26 Year
  Sex: Female

DRUGS (2)
  1. FORMOTEROL [Suspect]
     Active Substance: FORMOTEROL
     Indication: PRODUCT USED FOR UNKNOWN INDICATION
     Dosage: 12 MICROGRAM, BID
     Route: 055
  2. FASENRA [Concomitant]
     Active Substance: BENRALIZUMAB
     Dosage: UNK

REACTIONS (8)
  - Dyspnoea [Unknown]
  - Tachycardia [Unknown]
  - Painful respiration [Unknown]
  - Cough [Unknown]
  - Chest discomfort [Unknown]
  - Pulmonary embolism [Unknown]
  - Nasopharyngitis [Unknown]
  - Asthma [Unknown]
